FAERS Safety Report 7186849-3 (Version None)
Quarter: 2010Q4

REPORT INFORMATION
  Report Type: 
  Country: None (occurrence: None)
  Receive Date: 20101222
  Receipt Date: 20101216
  Transmission Date: 20110411
  Serious: Yes (Other)
  Sender: FDA-Public Use
  Company Number: B0689515A

PATIENT
  Sex: Female

DRUGS (2)
  1. ALKERAN [Suspect]
     Route: 042
     Dates: start: 20090101, end: 20090601
  2. THALIDOMIDE [Suspect]
     Dosage: 100MG CYCLIC
     Route: 048
     Dates: start: 20090101, end: 20090601

REACTIONS (2)
  - DYSPNOEA [None]
  - LUNG DISORDER [None]
